FAERS Safety Report 9729286 (Version 1)
Quarter: 2013Q4

REPORT INFORMATION
  Report Type: Spontaneous
  Country: US (occurrence: US)
  Receive Date: 20131204
  Receipt Date: 20131204
  Transmission Date: 20140711
  Serious: Yes (Life-Threatening, Hospitalization, Disabling)
  Sender: FDA-Public Use
  Company Number: US-BAYER-2013-147338

PATIENT
  Age: 44 Year
  Sex: Female
  Weight: 97.4 kg

DRUGS (16)
  1. YAZ [Suspect]
  2. YASMIN [Suspect]
  3. OCELLA [Suspect]
  4. ZARAH [Suspect]
  5. GIANVI [Suspect]
  6. BEYAZ [Suspect]
  7. SAFYRAL [Suspect]
  8. HYDROCODONE W/IBUPROFEN [Concomitant]
     Dosage: 7.5MG/200MG
  9. AMOXICILLIN [Concomitant]
     Dosage: 500 MG, UNK
  10. ETODOLAC [Concomitant]
     Dosage: 400 MG, UNK
  11. METHYLPREDNISOLONE [Concomitant]
     Dosage: 4 MG, UNK
  12. PENICILLIN VK [Concomitant]
     Dosage: 500 MG, UNK
  13. HYDROCODONE W/APAP [Concomitant]
     Dosage: 500 MG, UNK
  14. COUMADIN [Concomitant]
  15. HEPARIN [Concomitant]
  16. LOVENOX [Concomitant]

REACTIONS (11)
  - Pelvic venous thrombosis [None]
  - Deep vein thrombosis [None]
  - Deep vein thrombosis [None]
  - Injury [None]
  - Pain [None]
  - General physical health deterioration [None]
  - Emotional distress [None]
  - Anxiety [None]
  - Anhedonia [None]
  - Pain [None]
  - Contraindication to medical treatment [None]
